FAERS Safety Report 5137267-0 (Version None)
Quarter: 2006Q4

REPORT INFORMATION
  Report Type: 
  Country: None (occurrence: None)
  Receive Date: 20061030
  Receipt Date: 20051003
  Transmission Date: 20070319
  Serious: No
  Sender: FDA-Public Use
  Company Number: US-GLAXOSMITHKLINE-A0576690A

PATIENT
  Age: 83 Year
  Sex: Male

DRUGS (5)
  1. ADVAIR HFA [Suspect]
     Indication: ASTHMA
     Dosage: 1PUFF TWICE PER DAY
     Route: 055
     Dates: start: 20030101
  2. VERAPAMIL [Concomitant]
  3. CARDURA [Concomitant]
  4. CRESTOR [Concomitant]
  5. SINGULAIR [Concomitant]

REACTIONS (2)
  - BACK PAIN [None]
  - PALPITATIONS [None]
